FAERS Safety Report 5852483-8 (Version None)
Quarter: 2008Q3

REPORT INFORMATION
  Report Type: 
  Country: None (occurrence: None)
  Receive Date: 20080819
  Receipt Date: 20080807
  Transmission Date: 20090109
  Serious: Yes (Hospitalization, Other)
  Sender: FDA-Public Use
  Company Number: 2008BI016906

PATIENT
  Age: 67 Year
  Sex: Male

DRUGS (9)
  1. AVONEX [Suspect]
     Indication: MULTIPLE SCLEROSIS
     Dosage: 30 UG; QW; IM
     Route: 030
     Dates: start: 19980801
  2. CARBATROL (CON.) [Concomitant]
  3. ZETIA (CON.) [Concomitant]
  4. ASPIRIN (CON.) [Concomitant]
  5. TOPROL (CON.) [Concomitant]
  6. HYDROCHLOROTHIAZIDE (CON.) [Concomitant]
  7. LISINOPRIL (CON.) [Concomitant]
  8. GEMFIBROZIL (CON.) [Concomitant]
  9. MULTIVITAMINS (CON.) [Concomitant]

REACTIONS (4)
  - BLOOD PRESSURE FLUCTUATION [None]
  - BRAIN STEM ISCHAEMIA [None]
  - TRANSIENT ISCHAEMIC ATTACK [None]
  - VERTEBRAL ARTERY STENOSIS [None]
